FAERS Safety Report 4461817-0 (Version None)
Quarter: 2004Q3

REPORT INFORMATION
  Report Type: 
  Country: None (occurrence: None)
  Receive Date: 20040929
  Receipt Date: 20031023
  Transmission Date: 20050211
  Serious: No
  Sender: FDA-Public Use
  Company Number: US-GLAXOSMITHKLINE-A0431426A

PATIENT
  Sex: Male

DRUGS (5)
  1. SEREVENT [Suspect]
     Dosage: 1PUFF AS REQUIRED
     Route: 055
     Dates: start: 20031022
  2. DILTIAZEM [Concomitant]
  3. RANITIDINE [Concomitant]
  4. TOPROL-XL [Concomitant]
  5. ISOSORBIDE [Concomitant]

REACTIONS (1)
  - DRUG INEFFECTIVE [None]
